FAERS Safety Report 10331587 (Version 1)
Quarter: 2014Q3

REPORT INFORMATION
  Report Type: Spontaneous
  Country: US (occurrence: None)
  Receive Date: 20140721
  Receipt Date: 20140721
  Transmission Date: 20150326
  Serious: Yes (Other)
  Sender: FDA-Public Use
  Company Number: None

PATIENT
  Age: 76 Year
  Sex: Male
  Weight: 67.13 kg

DRUGS (8)
  1. EMLA [Concomitant]
     Active Substance: LIDOCAINE\PRILOCAINE
  2. BEVACIZUMAB [Suspect]
     Active Substance: BEVACIZUMAB
     Indication: COLON CANCER METASTATIC
     Dosage: 300-325 MG
     Route: 042
     Dates: start: 20120925, end: 20140217
  3. OMEPRAZOLE. [Concomitant]
     Active Substance: OMEPRAZOLE
  4. ACYCLOVIR. [Concomitant]
     Active Substance: ACYCLOVIR
  5. IRINOTECAN [Concomitant]
     Active Substance: IRINOTECAN
  6. FLONASE [Concomitant]
     Active Substance: FLUTICASONE PROPIONATE
  7. 5-FU (FLUOROURACIL) [Concomitant]
     Active Substance: FLUOROURACIL
  8. LEUCOVORIN [Concomitant]
     Active Substance: LEUCOVORIN

REACTIONS (4)
  - Dyspnoea exertional [None]
  - Pulmonary mass [None]
  - Pulmonary hypertension [None]
  - Lymphadenopathy [None]

NARRATIVE: CASE EVENT DATE: 20140219
